FAERS Safety Report 12857020 (Version 1)
Quarter: 2016Q4

REPORT INFORMATION
  Report Type: Spontaneous
  Country: PA (occurrence: PA)
  Receive Date: 20161018
  Receipt Date: 20161018
  Transmission Date: 20170207
  Serious: Yes (Other)
  Sender: FDA-Public Use
  Company Number: PA-ASTRAZENECA-2016SF07583

PATIENT
  Sex: Female
  Weight: 92.5 kg

DRUGS (2)
  1. FORXIGA [Suspect]
     Active Substance: DAPAGLIFLOZIN
     Dosage: ONE TABLET PER DAY
     Route: 048
  2. AXTAR [Concomitant]
     Dosage: 2 GRAMS PER DAY
     Route: 030

REACTIONS (1)
  - Haematoma [Unknown]

NARRATIVE: CASE EVENT DATE: 20161010
